FAERS Safety Report 8547420-1 (Version None)
Quarter: 2012Q3

REPORT INFORMATION
  Report Type: 
  Country: None (occurrence: None)
  Receive Date: 20120727
  Receipt Date: 20120411
  Transmission Date: 20120928
  Serious: No
  Sender: FDA-Public Use
  Company Number: US-ASTRAZENECA-2012SE23961

PATIENT
  Sex: Female

DRUGS (11)
  1. SEROQUEL [Suspect]
     Indication: DEPRESSION
     Route: 048
     Dates: start: 20070101
  2. SEROQUEL [Suspect]
     Route: 048
  3. SEROQUEL [Suspect]
     Route: 048
  4. SEROQUEL [Suspect]
     Indication: SLEEP DISORDER
     Route: 048
     Dates: start: 20070101
  5. SEROQUEL [Suspect]
     Indication: BIPOLAR DISORDER
     Route: 048
     Dates: start: 20070101
  6. SEROQUEL [Suspect]
     Indication: MANIA
     Route: 048
     Dates: start: 20070101
  7. SEROQUEL [Suspect]
     Route: 048
  8. WELLBUTRIN [Concomitant]
  9. XANAX [Concomitant]
  10. SEROQUEL [Suspect]
     Route: 048
  11. CLONAZEPAM [Concomitant]

REACTIONS (6)
  - FATIGUE [None]
  - SOMNOLENCE [None]
  - INTENTIONAL DRUG MISUSE [None]
  - THERAPEUTIC RESPONSE UNEXPECTED [None]
  - ANXIETY [None]
  - INSOMNIA RELATED TO ANOTHER MENTAL CONDITION [None]
